FAERS Safety Report 9292365 (Version 1)
Quarter: 2013Q2

REPORT INFORMATION
  Report Type: Spontaneous
  Country: US (occurrence: US)
  Receive Date: 20130516
  Receipt Date: 20130516
  Transmission Date: 20140414
  Serious: Yes (Other)
  Sender: FDA-Public Use
  Company Number: US-GENZYME-FABR-1003248

PATIENT
  Sex: Male

DRUGS (1)
  1. FABRAZYME [Suspect]
     Indication: FABRY^S DISEASE
     Dosage: 35 MG, UNK
     Route: 042
     Dates: start: 20030702

REACTIONS (2)
  - Dialysis [Not Recovered/Not Resolved]
  - Pain [Not Recovered/Not Resolved]
